FAERS Safety Report 5199369-2 (Version None)
Quarter: 2006Q4

REPORT INFORMATION
  Report Type: 
  Country: None (occurrence: None)
  Receive Date: 20061016
  Receipt Date: 20060620
  Transmission Date: 20070319
  Serious: No
  Sender: FDA-Public Use
  Company Number: 2006SP002473

PATIENT
  Age: 43 Year
  Sex: Female

DRUGS (7)
  1. LUNESTA [Suspect]
     Indication: INSOMNIA
     Dosage: SEE IMAGE
     Route: 048
     Dates: start: 20060401, end: 20060501
  2. LUNESTA [Suspect]
     Indication: INSOMNIA
     Dosage: SEE IMAGE
     Route: 048
     Dates: start: 20060613
  3. NEMBUTAL [Concomitant]
  4. PERCOCET [Concomitant]
  5. TYLENOL [Concomitant]
  6. MELATONIN [Concomitant]
  7. DIPHENHYDRAMINE HCL [Concomitant]

REACTIONS (1)
  - MIDDLE INSOMNIA [None]
